FAERS Safety Report 22344228 (Version 1)
Quarter: 2023Q2

REPORT INFORMATION
  Report Type: Spontaneous
  Country: IE (occurrence: IE)
  Receive Date: 20230519
  Receipt Date: 20230519
  Transmission Date: 20230722
  Serious: Yes (Other)
  Sender: FDA-Public Use
  Company Number: IE-HPRA-2023-103442

PATIENT
  Sex: Male

DRUGS (2)
  1. PREGABALIN [Suspect]
     Active Substance: PREGABALIN
     Indication: Withdrawal syndrome
     Dosage: 800 MILLIGRAM
     Route: 048
     Dates: start: 2022
  2. METHADONE [Concomitant]
     Active Substance: METHADONE HYDROCHLORIDE
     Indication: Drug dependence
     Dosage: 80 MILLIGRAM
     Route: 065

REACTIONS (3)
  - Prescription drug used without a prescription [Unknown]
  - Dependence [Unknown]
  - No adverse event [Unknown]
